FAERS Safety Report 18589047 (Version 2)
Quarter: 2020Q4

REPORT INFORMATION
  Report Type: Spontaneous
  Country: BR (occurrence: BR)
  Receive Date: 20201208
  Receipt Date: 20201224
  Transmission Date: 20210114
  Serious: Yes (Hospitalization)
  Sender: FDA-Public Use
  Company Number: BR-ROCHE-2724996

PATIENT
  Sex: Female

DRUGS (5)
  1. PANTOPRAZOLE [Concomitant]
     Active Substance: PANTOPRAZOLE
  2. CLONAZEPAM. [Concomitant]
     Active Substance: CLONAZEPAM
     Dosage: 20 DROPS AT NIGHT
  3. KADCYLA [Suspect]
     Active Substance: ADO-TRASTUZUMAB EMTANSINE
     Indication: BREAST CANCER
     Route: 065
     Dates: start: 20200908
  4. KADCYLA [Suspect]
     Active Substance: ADO-TRASTUZUMAB EMTANSINE
     Route: 065
  5. HYLO GEL [Concomitant]

REACTIONS (9)
  - Asthenia [Recovering/Resolving]
  - Pain [Recovering/Resolving]
  - Lacrimation increased [Unknown]
  - Trigeminal neuralgia [Recovering/Resolving]
  - Herpes zoster [Recovering/Resolving]
  - Nausea [Recovering/Resolving]
  - Burning sensation [Recovering/Resolving]
  - Photophobia [Unknown]
  - Neoplasm [Unknown]
